FAERS Safety Report 4805290-9 (Version None)
Quarter: 2005Q4

REPORT INFORMATION
  Report Type: 
  Country: None (occurrence: None)
  Receive Date: 20051018
  Receipt Date: 20021108
  Transmission Date: 20060501
  Serious: Yes (Hospitalization)
  Sender: FDA-Public Use
  Company Number: WAES 0309USA01210

PATIENT
  Age: 78 Year
  Sex: Male

DRUGS (1)
  1. COZAAR [Suspect]
     Indication: HYPERTENSION
     Dosage: 50 MG/DAILY
     Route: 048
     Dates: start: 20011012

REACTIONS (2)
  - BENIGN PROSTATIC HYPERPLASIA [None]
  - TRANSIENT ISCHAEMIC ATTACK [None]
